FAERS Safety Report 8620110-2 (Version None)
Quarter: 2012Q3

REPORT INFORMATION
  Report Type: 
  Country: None (occurrence: None)
  Receive Date: 20120824
  Receipt Date: 20120820
  Transmission Date: 20120928
  Serious: Yes (Death)
  Sender: FDA-Public Use
  Company Number: US-CELGENEUS-163-50794-12082214

PATIENT
  Sex: Female

DRUGS (4)
  1. VIDAZA [Suspect]
     Indication: MYELODYSPLASTIC SYNDROME
     Dosage: 100 MILLIGRAM
     Route: 041
     Dates: start: 20101013
  2. ARANESP [Concomitant]
     Route: 065
  3. GRANISETRON [Concomitant]
     Route: 065
  4. NEUPOGEN [Concomitant]
     Route: 065

REACTIONS (1)
  - DEATH [None]
